FAERS Safety Report 20923653 (Version 1)
Quarter: 2022Q2

REPORT INFORMATION
  Report Type: Report from Study
  Country: EG (occurrence: EG)
  Receive Date: 20220607
  Receipt Date: 20220607
  Transmission Date: 20220720
  Serious: Yes (Other)
  Sender: FDA-Public Use
  Company Number: EG-NOVARTISPH-NVSC2021EG020017

PATIENT
  Age: 65 Year
  Sex: Female

DRUGS (9)
  1. AFINITOR [Suspect]
     Active Substance: EVEROLIMUS
     Indication: Metastasis
     Dosage: 10 MG, QD
     Route: 065
     Dates: start: 20200727
  2. AFINITOR [Suspect]
     Active Substance: EVEROLIMUS
     Indication: Metastases to central nervous system
     Dosage: 10 MG, QD, ONE TABLET PER DAY
     Route: 065
     Dates: start: 202005, end: 20220526
  3. AFINITOR [Suspect]
     Active Substance: EVEROLIMUS
     Indication: Metastases to trachea
  4. AFINITOR [Suspect]
     Active Substance: EVEROLIMUS
     Indication: Metastasis
  5. FEMARA [Suspect]
     Active Substance: LETROZOLE
     Indication: Breast cancer metastatic
     Dosage: 2.5 MG, QD
     Route: 065
     Dates: start: 20200727
  6. FEMARA [Suspect]
     Active Substance: LETROZOLE
     Indication: Metastases to central nervous system
     Dosage: UNK, QD, ONE TABLET PER DAY
     Route: 065
     Dates: start: 202005
  7. FEMARA [Suspect]
     Active Substance: LETROZOLE
     Indication: Metastases to trachea
  8. AMARYL [Concomitant]
     Active Substance: GLIMEPIRIDE
     Indication: Diabetes mellitus
     Dosage: 2 MG, QD, ONE TABLET PER DAY
     Route: 065
     Dates: start: 202110
  9. JANUMET [Concomitant]
     Active Substance: METFORMIN HYDROCHLORIDE\SITAGLIPTIN PHOSPHATE
     Indication: Diabetes mellitus
     Dosage: 50 MG, ONE TABLET PER DAY
     Route: 065
     Dates: start: 202110

REACTIONS (12)
  - Neoplasm malignant [Recovered/Resolved]
  - Malignant neoplasm progression [Unknown]
  - Metastasis [Unknown]
  - Neoplasm [Recovered/Resolved]
  - Pancreatic disorder [Not Recovered/Not Resolved]
  - Tumour marker increased [Unknown]
  - Onychoclasis [Not Recovered/Not Resolved]
  - Blood glucose increased [Not Recovered/Not Resolved]
  - Pyrexia [Recovering/Resolving]
  - Mouth ulceration [Not Recovered/Not Resolved]
  - Off label use [Unknown]
  - Product use in unapproved indication [Unknown]

NARRATIVE: CASE EVENT DATE: 20200901
